FAERS Safety Report 6044180-3 (Version None)
Quarter: 2009Q1

REPORT INFORMATION
  Report Type: 
  Country: None (occurrence: None)
  Receive Date: 20090115
  Receipt Date: 20090115
  Transmission Date: 20090719
  Serious: No
  Sender: FDA-Public Use
  Company Number: None

PATIENT

DRUGS (8)
  1. AREDIA [Suspect]
     Indication: MULTIPLE MYELOMA
     Dosage: 90 MG MONTHLY IV
     Route: 042
     Dates: start: 20010901, end: 20031001
  2. ZOMETA [Suspect]
     Indication: MULTIPLE MYELOMA
     Dosage: 4 MG MONTHLY IV
     Route: 042
     Dates: start: 20031101, end: 20080201
  3. STEM CELL TRANSPLANT [Concomitant]
  4. TOPROL-XL [Concomitant]
  5. SYNTHROID [Concomitant]
  6. ZYRTEC [Concomitant]
  7. ASPIRIN [Concomitant]
  8. CALCIUM [Concomitant]

REACTIONS (3)
  - BONE DISORDER [None]
  - JAW DISORDER [None]
  - PURULENT DISCHARGE [None]
